FAERS Safety Report 19458892 (Version 1)
Quarter: 2021Q2

REPORT INFORMATION
  Report Type: Spontaneous
  Country: ES (occurrence: ES)
  Receive Date: 20210624
  Receipt Date: 20210624
  Transmission Date: 20210717
  Serious: Yes (Other)
  Sender: FDA-Public Use
  Company Number: ES-VELOXIS PHARMACEUTICALS-2021VELES-000428

PATIENT
  Age: 8 Year
  Sex: Male

DRUGS (5)
  1. IVERMECTIN. [Suspect]
     Active Substance: IVERMECTIN
     Dosage: A SECOND COURSE WAS REPEATED AFTER 2 WEEKS
  2. ALBENDAZOLE. [Suspect]
     Active Substance: ALBENDAZOLE
     Indication: STRONGYLOIDIASIS
     Dosage: COMBINED REGIMEN OF ALBENDAZOLE AND IVERMECTIN
     Route: 065
  3. IVERMECTIN. [Suspect]
     Active Substance: IVERMECTIN
     Indication: STRONGYLOIDIASIS
     Dosage: .2 MG/KG DAILY;
     Route: 065
  4. IVERMECTIN. [Suspect]
     Active Substance: IVERMECTIN
     Dosage: COMBINED REGIMEN OF ALBENDAZOLE AND IVERMECTIN
     Route: 065
  5. ENVARSUS XR [Suspect]
     Active Substance: TACROLIMUS
     Indication: IMMUNOSUPPRESSANT DRUG THERAPY
     Route: 065

REACTIONS (5)
  - Product use issue [Unknown]
  - Hypersensitivity [Recovered/Resolved]
  - Off label use [Unknown]
  - Treatment failure [Unknown]
  - Strongyloidiasis [Recovering/Resolving]
